FAERS Safety Report 11611125 (Version 2)
Quarter: 2015Q4

REPORT INFORMATION
  Report Type: Report from Study
  Country: CA (occurrence: CA)
  Receive Date: 20151008
  Receipt Date: 20151019
  Transmission Date: 20160304
  Serious: Yes (Hospitalization, Other)
  Sender: FDA-Public Use
  Company Number: CA-JNJFOC-20150804814

PATIENT
  Age: 29 Year
  Sex: Female
  Weight: 107.6 kg

DRUGS (8)
  1. FOLIC ACID. [Suspect]
     Active Substance: FOLIC ACID
     Indication: PRODUCT USED FOR UNKNOWN INDICATION
     Route: 065
  2. OXYBUTYNIN [Suspect]
     Active Substance: OXYBUTYNIN
     Indication: PRODUCT USED FOR UNKNOWN INDICATION
     Route: 065
  3. SULFASALAZINE. [Suspect]
     Active Substance: SULFASALAZINE
     Indication: PRODUCT USED FOR UNKNOWN INDICATION
     Route: 065
  4. SIMPONI [Suspect]
     Active Substance: GOLIMUMAB
     Indication: PSORIATIC ARTHROPATHY
     Route: 042
     Dates: start: 20140801
  5. OXYCODONE [Suspect]
     Active Substance: OXYCODONE
     Indication: PRODUCT USED FOR UNKNOWN INDICATION
     Route: 065
  6. SIMPONI [Suspect]
     Active Substance: GOLIMUMAB
     Indication: RHEUMATOID ARTHRITIS
     Route: 042
     Dates: start: 20140801
  7. MARIJUANA [Suspect]
     Active Substance: CANNABIS SATIVA SUBSP. INDICA TOP
     Indication: PRODUCT USED FOR UNKNOWN INDICATION
     Route: 065
  8. NPH INSULIN [Concomitant]
     Active Substance: INSULIN BEEF
     Route: 065

REACTIONS (13)
  - Sepsis [Unknown]
  - Flushing [Unknown]
  - Nausea [Unknown]
  - Depressed level of consciousness [Unknown]
  - Aphonia [Unknown]
  - Infusion related reaction [Unknown]
  - Exposure during pregnancy [Recovered/Resolved]
  - Dysgeusia [Unknown]
  - Abortion spontaneous [Unknown]
  - Vomiting [Unknown]
  - Diarrhoea [Unknown]
  - Therapeutic procedure [Unknown]
  - Influenza like illness [Recovered/Resolved]

NARRATIVE: CASE EVENT DATE: 2015
